FAERS Safety Report 8537656-8 (Version None)
Quarter: 2012Q3

REPORT INFORMATION
  Report Type: 
  Country: None (occurrence: None)
  Receive Date: 20120725
  Receipt Date: 20120718
  Transmission Date: 20120928
  Serious: Yes (Other)
  Sender: FDA-Public Use
  Company Number: PHHY2012FI062352

PATIENT
  Age: 35 Year
  Sex: Male

DRUGS (4)
  1. BISOPROLOL FUMARATE [Concomitant]
  2. CLOZAPINE [Suspect]
     Dosage: 600 MG, PER DAY
     Dates: start: 20070101
  3. CLOZAPINE [Suspect]
     Indication: SCHIZOPHRENIA
     Dosage: 600 MG, PER DAY
  4. LORAZEPAM [Concomitant]

REACTIONS (4)
  - IDIOPATHIC THROMBOCYTOPENIC PURPURA [None]
  - THROMBOCYTOPENIA [None]
  - NEUTROPENIA [None]
  - LEUKOPENIA [None]
